FAERS Safety Report 9301324 (Version 2)
Quarter: 2013Q2

REPORT INFORMATION
  Report Type: Spontaneous
  Country: US (occurrence: US)
  Receive Date: 20130521
  Receipt Date: 20130628
  Transmission Date: 20140414
  Serious: No
  Sender: FDA-Public Use
  Company Number: US-PFIZER INC-2013151833

PATIENT
  Age: 67 Year
  Sex: Male
  Weight: 79.37 kg

DRUGS (8)
  1. SILDENAFIL CITRATE [Suspect]
     Indication: PULMONARY HYPERTENSION
     Dosage: 20 MG, 4X/DAY
     Route: 048
     Dates: start: 201302, end: 201302
  2. CRESTOR [Concomitant]
     Indication: BLOOD CHOLESTEROL INCREASED
     Dosage: 10 MG, UNK
  3. COUMADINE [Concomitant]
     Indication: ANTICOAGULANT THERAPY
     Dosage: 2 MG, UNK
  4. LOPRESSOR [Concomitant]
     Dosage: 50 MG, UNK
  5. LASIX [Concomitant]
     Dosage: 40 MG, EVERY OTHER DAY
  6. POTASSIUM [Concomitant]
     Dosage: 20 MG, EVERY OTHER DAY
  7. ASPIRIN [Concomitant]
     Dosage: UNK
  8. LEVOTHYROXINE [Concomitant]
     Dosage: UNK

REACTIONS (5)
  - Drug prescribing error [Unknown]
  - Hypersensitivity [Unknown]
  - Head discomfort [Unknown]
  - Eye swelling [Unknown]
  - Eye pain [Unknown]
